FAERS Safety Report 10342333 (Version 1)
Quarter: 2014Q3

REPORT INFORMATION
  Report Type: Spontaneous
  Country: US (occurrence: US)
  Receive Date: 20140725
  Receipt Date: 20140725
  Transmission Date: 20150326
  Serious: No
  Sender: FDA-Public Use
  Company Number: US-GLAXOSMITHKLINE-A1028910A

PATIENT
  Age: 54 Year
  Sex: Female

DRUGS (9)
  1. MICARDIS HCT [Concomitant]
     Active Substance: HYDROCHLOROTHIAZIDE\TELMISARTAN
  2. CALCIUM [Concomitant]
     Active Substance: CALCIUM
  3. ASPIRIN. [Concomitant]
     Active Substance: ASPIRIN
  4. METFORMIN [Concomitant]
     Active Substance: METFORMIN HYDROCHLORIDE
  5. LAMOTRIGINE. [Suspect]
     Active Substance: LAMOTRIGINE
     Indication: CONVULSION
     Dosage: 75MG TWICE PER DAY
     Route: 048
     Dates: start: 201105
  6. TRILEPTAL [Suspect]
     Active Substance: OXCARBAZEPINE
     Indication: PRODUCT USED FOR UNKNOWN INDICATION
  7. LAMICTAL XR [Suspect]
     Active Substance: LAMOTRIGINE
     Indication: CONVULSION
     Route: 048
     Dates: start: 201104
  8. SIMVASTATIN. [Concomitant]
     Active Substance: SIMVASTATIN
  9. MULTIVITAMIN [Concomitant]
     Active Substance: VITAMINS

REACTIONS (6)
  - Anxiety [Unknown]
  - Confusional state [Unknown]
  - Amenorrhoea [Not Recovered/Not Resolved]
  - Mental disorder [Unknown]
  - Amnesia [Unknown]
  - Nervousness [Unknown]

NARRATIVE: CASE EVENT DATE: 201104
